FAERS Safety Report 11594133 (Version 2)
Quarter: 2015Q4

REPORT INFORMATION
  Report Type: Spontaneous
  Country: JP (occurrence: JP)
  Receive Date: 20151005
  Receipt Date: 20151123
  Transmission Date: 20160304
  Serious: Yes (Life-Threatening, Other)
  Sender: FDA-Public Use
  Company Number: JP-PFIZER INC-2015327902

PATIENT
  Age: 34 Year
  Sex: Female

DRUGS (7)
  1. CHAMPIX [Suspect]
     Active Substance: VARENICLINE TARTRATE
     Indication: SMOKING CESSATION THERAPY
     Dosage: 0.5 MG, 1X/DAY
     Route: 048
     Dates: start: 20150905, end: 201509
  2. CHAMPIX [Suspect]
     Active Substance: VARENICLINE TARTRATE
     Dosage: 0.5 MG, 2X/DAY
     Route: 048
     Dates: start: 201509, end: 201509
  3. CHAMPIX [Suspect]
     Active Substance: VARENICLINE TARTRATE
     Dosage: 1 MG, 2X/DAY
     Route: 048
     Dates: start: 201509, end: 201509
  4. HALCION [Suspect]
     Active Substance: TRIAZOLAM
     Dosage: UNK
     Route: 048
  5. ROHYPNOL [Suspect]
     Active Substance: FLUNITRAZEPAM
     Dosage: UNK
  6. DEPAS [Suspect]
     Active Substance: ETIZOLAM
     Dosage: UNK
  7. MAGLAX [Suspect]
     Active Substance: MAGNESIUM OXIDE
     Dosage: UNK

REACTIONS (4)
  - Abnormal behaviour [Recovered/Resolved]
  - Amnesia [Unknown]
  - Vomiting [Unknown]
  - Insomnia [Unknown]

NARRATIVE: CASE EVENT DATE: 201509
